FAERS Safety Report 15731375 (Version 1)
Quarter: 2018Q4

REPORT INFORMATION
  Report Type: Spontaneous
  Country: FR (occurrence: FR)
  Receive Date: 20181217
  Receipt Date: 20181217
  Transmission Date: 20190205
  Serious: Yes (Death)
  Sender: FDA-Public Use
  Company Number: FR-SAKK-2018SA342164AA

PATIENT
  Age: 93 Year
  Sex: Male

DRUGS (7)
  1. LOVENOX [Suspect]
     Active Substance: ENOXAPARIN SODIUM
     Indication: ANTICOAGULANT THERAPY
     Dosage: UNK UNK, UNK
     Route: 041
     Dates: start: 20180924, end: 20180927
  2. KARDEGIC [Suspect]
     Active Substance: ASPIRIN DL-LYSINE
     Dosage: 75 MG, QD
     Route: 048
  3. AMOXICILLIN CLAVULANIC ACID [Suspect]
     Active Substance: AMOXICILLIN\CLAVULANIC ACID
     Indication: SEPSIS
     Dosage: 1 FORME PHARMACEUTIQUE
     Route: 041
     Dates: start: 20180925, end: 20180928
  4. AMOXICILLINE PANPHARMA [Suspect]
     Active Substance: AMOXICILLIN
     Indication: SEPSIS
     Dosage: 3 G, QD
     Route: 041
     Dates: start: 20180924, end: 20180925
  5. FUROSEMIDE ARROW [Suspect]
     Active Substance: FUROSEMIDE
     Route: 065
     Dates: start: 20180923, end: 20180928
  6. IODIXANOL. [Suspect]
     Active Substance: IODIXANOL
     Indication: COMPUTERISED TOMOGRAM
     Dosage: 1 SINGLE SHOT
     Route: 041
     Dates: start: 20180925, end: 20180925
  7. LANSOPRAZOLE MYLAN [Suspect]
     Active Substance: LANSOPRAZOLE
     Indication: GASTROOESOPHAGEAL REFLUX DISEASE
     Dosage: 1 DF, QD

REACTIONS (2)
  - Acute kidney injury [Fatal]
  - Gastrointestinal haemorrhage [Fatal]

NARRATIVE: CASE EVENT DATE: 20180925
